FAERS Safety Report 6526696-6 (Version None)
Quarter: 2010Q1

REPORT INFORMATION
  Report Type: 
  Country: None (occurrence: None)
  Receive Date: 20100104
  Receipt Date: 20100104
  Transmission Date: 20100710
  Serious: Yes (Life-Threatening, Hospitalization)
  Sender: FDA-Public Use
  Company Number: None

PATIENT
  Sex: Female
  Weight: 72.5755 kg

DRUGS (2)
  1. ZETIA [Suspect]
     Indication: BLOOD CHOLESTEROL INCREASED
     Dates: end: 20060301
  2. VYTORIN [Suspect]
     Dosage: 1 A DAY
     Dates: start: 20060918

REACTIONS (3)
  - BLOOD TEST ABNORMAL [None]
  - MUSCLE SPASMS [None]
  - RENAL CYST [None]
